FAERS Safety Report 7043690-X (Version None)
Quarter: 2010Q3

REPORT INFORMATION
  Report Type: 
  Country: None (occurrence: None)
  Receive Date: 20100929
  Receipt Date: 20100630
  Transmission Date: 20110219
  Serious: No
  Sender: FDA-Public Use
  Company Number: US-WYE-H15957210

PATIENT
  Age: 55 Year
  Sex: Female
  Weight: 61.29 kg

DRUGS (6)
  1. PRISTIQ [Suspect]
     Indication: ANXIETY
     Dosage: 50 MG 1X PER 1 DAY, ORAL ; 50 MG 1X PER 1 DAY, ORAL ; 50 MG 1X PER 1 DAY, ORAL
     Route: 048
     Dates: start: 20100101, end: 20100101
  2. PRISTIQ [Suspect]
     Indication: DEPRESSION
     Dosage: 50 MG 1X PER 1 DAY, ORAL ; 50 MG 1X PER 1 DAY, ORAL ; 50 MG 1X PER 1 DAY, ORAL
     Route: 048
     Dates: start: 20100101, end: 20100101
  3. PRISTIQ [Suspect]
     Indication: ANXIETY
     Dosage: 50 MG 1X PER 1 DAY, ORAL ; 50 MG 1X PER 1 DAY, ORAL ; 50 MG 1X PER 1 DAY, ORAL
     Route: 048
     Dates: start: 20100501, end: 20100626
  4. PRISTIQ [Suspect]
     Indication: DEPRESSION
     Dosage: 50 MG 1X PER 1 DAY, ORAL ; 50 MG 1X PER 1 DAY, ORAL ; 50 MG 1X PER 1 DAY, ORAL
     Route: 048
     Dates: start: 20100501, end: 20100626
  5. PRISTIQ [Suspect]
     Indication: ANXIETY
     Dosage: 50 MG 1X PER 1 DAY, ORAL ; 50 MG 1X PER 1 DAY, ORAL ; 50 MG 1X PER 1 DAY, ORAL
     Route: 048
     Dates: start: 20100628
  6. PRISTIQ [Suspect]
     Indication: DEPRESSION
     Dosage: 50 MG 1X PER 1 DAY, ORAL ; 50 MG 1X PER 1 DAY, ORAL ; 50 MG 1X PER 1 DAY, ORAL
     Route: 048
     Dates: start: 20100628

REACTIONS (9)
  - CHEST DISCOMFORT [None]
  - DIZZINESS [None]
  - HEART RATE [None]
  - HEART RATE IRREGULAR [None]
  - INTENTIONAL DRUG MISUSE [None]
  - NAUSEA [None]
  - PALPITATIONS [None]
  - TACHYCARDIA [None]
  - VERTIGO [None]
